FAERS Safety Report 24960995 (Version 2)
Quarter: 2025Q1

REPORT INFORMATION
  Report Type: Spontaneous
  Country: DK (occurrence: DK)
  Receive Date: 20250212
  Receipt Date: 20250227
  Transmission Date: 20250408
  Serious: Yes (Other)
  Sender: ACS DOBFAR
  Company Number: DK-ACS-20250083

PATIENT
  Age: 8 Year
  Sex: Male
  Weight: 21 kg

DRUGS (22)
  1. MEROPENEM [Interacting]
     Active Substance: MEROPENEM
     Indication: Abdominal infection
     Dosage: 1200MG;FROM DAY 13 TO23
     Route: 040
  2. ANIDULAFUNGIN [Concomitant]
     Active Substance: ANIDULAFUNGIN
     Indication: Abdominal infection
     Dosage: FROM DAY 11 TO DAY 35
     Route: 042
  3. VALPROIC ACID [Interacting]
     Active Substance: VALPROIC ACID
     Indication: Epilepsy
     Route: 048
  4. LAMOTRIGINE [Interacting]
     Active Substance: LAMOTRIGINE
     Indication: Epilepsy
     Route: 048
  5. TOPIRAMATE [Interacting]
     Active Substance: TOPIRAMATE
     Indication: Epilepsy
     Route: 048
  6. CLOBAZAM [Concomitant]
     Active Substance: CLOBAZAM
     Indication: Epilepsy
     Route: 048
  7. FOSPHENYTOIN [Interacting]
     Active Substance: FOSPHENYTOIN
     Indication: Epilepsy
     Route: 042
  8. ESOMEPRAZOLE [Concomitant]
     Active Substance: ESOMEPRAZOLE
     Route: 048
  9. ONDANSETRON [Concomitant]
     Active Substance: ONDANSETRON
     Route: 048
  10. ONDANSETRON [Concomitant]
     Active Substance: ONDANSETRON
     Route: 042
  11. CLONIDINE [Concomitant]
     Active Substance: CLONIDINE
     Route: 042
  12. DEXAMETHASONE [Concomitant]
     Active Substance: DEXAMETHASONE
     Route: 042
  13. NAPROXEN [Concomitant]
     Active Substance: NAPROXEN
     Route: 048
  14. FENTANYL [Concomitant]
     Active Substance: FENTANYL
     Route: 042
  15. PROPOFOL [Concomitant]
     Active Substance: PROPOFOL
     Route: 042
  16. ACETAMINOPHEN [Concomitant]
     Active Substance: ACETAMINOPHEN
     Route: 048
  17. ACETAMINOPHEN [Concomitant]
     Active Substance: ACETAMINOPHEN
     Route: 042
  18. MORPHINE [Concomitant]
     Active Substance: MORPHINE
     Route: 048
  19. MORPHINE [Concomitant]
     Active Substance: MORPHINE
     Route: 042
  20. LEVETIRACETAM [Concomitant]
     Active Substance: LEVETIRACETAM
     Route: 042
  21. LORAZEPAM [Concomitant]
     Active Substance: LORAZEPAM
     Route: 048
  22. MELATONIN [Concomitant]
     Active Substance: MELATONIN
     Route: 048

REACTIONS (2)
  - Drug interaction [Recovered/Resolved]
  - Anticonvulsant drug level below therapeutic [Recovered/Resolved]
